FAERS Safety Report 18962275 (Version 1)
Quarter: 2021Q1

REPORT INFORMATION
  Report Type: Spontaneous
  Country: US (occurrence: US)
  Receive Date: 20210302
  Receipt Date: 20210302
  Transmission Date: 20210420
  Serious: Yes (Other)
  Sender: FDA-Public Use
  Company Number: US-SEATTLE GENETICS-2021SGN01128

PATIENT

DRUGS (3)
  1. KADCYLA [Concomitant]
     Active Substance: ADO-TRASTUZUMAB EMTANSINE
  2. CAPECITABINE. [Concomitant]
     Active Substance: CAPECITABINE
  3. TUKYSA [Suspect]
     Active Substance: TUCATINIB
     Indication: PRODUCT USED FOR UNKNOWN INDICATION
     Route: 048

REACTIONS (4)
  - Blood creatinine increased [Unknown]
  - Haemolytic anaemia [Unknown]
  - Disease progression [Unknown]
  - Liver function test increased [Unknown]
